FAERS Safety Report 9544196 (Version 1)
Quarter: 2013Q3

REPORT INFORMATION
  Report Type: Spontaneous
  Country: US (occurrence: US)
  Receive Date: 20130923
  Receipt Date: 20130923
  Transmission Date: 20140515
  Serious: No
  Sender: FDA-Public Use
  Company Number: US-ASTRAZENECA-2013SE08846

PATIENT
  Age: 84 Year
  Sex: Male
  Weight: 72.6 kg

DRUGS (2)
  1. LISINOPRIL [Suspect]
     Route: 048
  2. BRILINTA [Suspect]
     Indication: ACUTE CORONARY SYNDROME
     Route: 048
     Dates: start: 20121221

REACTIONS (1)
  - Rash [Unknown]
